FAERS Safety Report 25285408 (Version 1)
Quarter: 2025Q2

REPORT INFORMATION
  Report Type: Spontaneous
  Country: GB (occurrence: GB)
  Receive Date: 20250509
  Receipt Date: 20250509
  Transmission Date: 20250717
  Serious: Yes (Other)
  Sender: ACCORD
  Company Number: None

PATIENT
  Age: 61 Year
  Sex: Female
  Weight: 70 kg

DRUGS (6)
  1. EZETIMIBE [Suspect]
     Active Substance: EZETIMIBE
     Indication: Product used for unknown indication
     Dosage: ONE TABLET TO BE TAKEN ONCE A DAY FOR CHOLESTEROL, STRENGTH: 10 MG
     Dates: start: 20240624, end: 20250404
  2. AMLODIPINE [Concomitant]
     Active Substance: AMLODIPINE BESYLATE
     Dosage: ONE TABLET TO BE TAKEN ONCE A DAY IN THE MORNIN...
     Dates: start: 20240606
  3. ASPIRIN [Concomitant]
     Active Substance: ASPIRIN
     Dosage: ONE TABLET TO BE TAKEN ONCE A DAY  TO HELP PREV...
     Dates: start: 20240606
  4. ATORVASTATIN [Concomitant]
     Active Substance: ATORVASTATIN
     Dosage: ONE TABLET TO BE TAKEN DAILY TO LOWER CHOLESTER...
     Dates: start: 20240606
  5. LEVOTHYROXINE [Concomitant]
     Active Substance: LEVOTHYROXINE
     Dosage: ONE TABLET TO BE TAKEN ONCE A DAY IN THE MORNIN...
     Dates: start: 20240606
  6. RAMIPRIL [Concomitant]
     Active Substance: RAMIPRIL
     Dosage: ONE CAPSULE TO BE TAKEN ONCE A DAY  TO REDUCE B...
     Dates: start: 20240606

REACTIONS (2)
  - Nausea [Recovered/Resolved]
  - Lethargy [Unknown]
